FAERS Safety Report 7946436-3 (Version None)
Quarter: 2011Q4

REPORT INFORMATION
  Report Type: 
  Country: None (occurrence: None)
  Receive Date: 20111129
  Receipt Date: 20111012
  Transmission Date: 20120403
  Serious: No
  Sender: FDA-Public Use
  Company Number: US-BAYER-2011-099896

PATIENT
  Sex: Male

DRUGS (5)
  1. ASPIRIN [Concomitant]
  2. ALEVE (CAPLET) [Suspect]
     Indication: MYALGIA
     Dosage: 1 DF, BID
     Route: 048
  3. SIMVASTATIN [Concomitant]
  4. NORVASC [Concomitant]
  5. XANAX [Concomitant]

REACTIONS (1)
  - NO ADVERSE EVENT [None]
